FAERS Safety Report 20201533 (Version 9)
Quarter: 2022Q2

REPORT INFORMATION
  Report Type: Report from Study
  Country: US (occurrence: US)
  Receive Date: 20211217
  Receipt Date: 20220621
  Transmission Date: 20220721
  Serious: Yes (Other)
  Sender: FDA-Public Use
  Company Number: US-NOVARTISPH-NVSC2021US283659

PATIENT
  Sex: Male

DRUGS (2)
  1. ENTRESTO [Suspect]
     Active Substance: SACUBITRIL\VALSARTAN
     Indication: Product used for unknown indication
     Dosage: 1 DOSAGE FORM (49/51 MG)
     Route: 065
     Dates: start: 20190503
  2. ENTRESTO [Suspect]
     Active Substance: SACUBITRIL\VALSARTAN
     Dosage: 1 DOSAGE FORM (49/51 MG)
     Route: 065
     Dates: start: 202012

REACTIONS (16)
  - Prostate cancer [Recovering/Resolving]
  - Memory impairment [Unknown]
  - Burning sensation [Not Recovered/Not Resolved]
  - Back pain [Recovering/Resolving]
  - Disturbance in attention [Unknown]
  - Oropharyngeal pain [Recovered/Resolved]
  - Hot flush [Unknown]
  - Concomitant disease aggravated [Unknown]
  - Sinus disorder [Recovered/Resolved]
  - Eating disorder [Recovered/Resolved]
  - Agitation [Unknown]
  - Asthenia [Recovering/Resolving]
  - Fatigue [Unknown]
  - Cough [Recovering/Resolving]
  - Inappropriate schedule of product administration [Not Recovered/Not Resolved]
  - Product dose omission in error [Recovering/Resolving]

NARRATIVE: CASE EVENT DATE: 20200101
